FAERS Safety Report 6329145-6 (Version None)
Quarter: 2009Q3

REPORT INFORMATION
  Report Type: 
  Country: None (occurrence: None)
  Receive Date: 20090826
  Receipt Date: 20090811
  Transmission Date: 20100115
  Serious: No
  Sender: FDA-Public Use
  Company Number: BR-ROCHE-650744

PATIENT
  Sex: Male
  Weight: 37.7 kg

DRUGS (7)
  1. TAMIFLU [Suspect]
     Dosage: STRENGTH: 12 MG/ML
     Route: 050
     Dates: start: 20090807
  2. BACLOFEN [Concomitant]
     Route: 048
  3. CARBAMAZEPINE [Concomitant]
     Indication: CONVULSION
     Route: 048
  4. NUJOL [Concomitant]
     Indication: CONSTIPATION
     Route: 048
  5. ZINNAT [Concomitant]
     Indication: ANTIBIOTIC THERAPY
     Route: 048
  6. NEBACETIN [Concomitant]
     Indication: SKIN LESION
     Route: 061
  7. PHENOBARBITAL [Concomitant]
     Indication: CONVULSION

REACTIONS (2)
  - DRUG ADMINISTRATION ERROR [None]
  - NO ADVERSE EVENT [None]
